FAERS Safety Report 9369196 (Version 1)
Quarter: 2013Q2

REPORT INFORMATION
  Report Type: Spontaneous
  Country: US (occurrence: US)
  Receive Date: 20130626
  Receipt Date: 20130626
  Transmission Date: 20140414
  Serious: Yes (Life-Threatening)
  Sender: FDA-Public Use
  Company Number: PHEH2013US013668

PATIENT
  Sex: Female

DRUGS (1)
  1. DIOVAN [Suspect]

REACTIONS (2)
  - Feeling abnormal [Unknown]
  - Mood altered [Unknown]
